FAERS Safety Report 14276865 (Version 5)
Quarter: 2020Q3

REPORT INFORMATION
  Report Type: Spontaneous
  Country: NL (occurrence: NL)
  Receive Date: 20171211
  Receipt Date: 20200824
  Transmission Date: 20201102
  Serious: Yes (Life-Threatening, Disabling)
  Sender: FDA-Public Use
  Company Number: NL-OTSUKA-2015_017504

PATIENT
  Age: 18 Year
  Sex: Male
  Weight: 130 kg

DRUGS (2)
  1. ABILIFY [Suspect]
     Active Substance: ARIPIPRAZOLE
     Indication: SUSPICIOUSNESS
     Dosage: 15 MG, TID
     Route: 048
     Dates: start: 20131030, end: 20150519
  2. RISPERDAL [Suspect]
     Active Substance: RISPERIDONE
     Indication: SUSPICIOUSNESS
     Dosage: 6 MG, TID
     Route: 048
     Dates: start: 20131030, end: 20150519

REACTIONS (5)
  - Post-traumatic stress disorder [Not Recovered/Not Resolved]
  - Eye pain [Not Recovered/Not Resolved]
  - Inappropriate schedule of product administration [Unknown]
  - Eye movement disorder [Not Recovered/Not Resolved]
  - Product use in unapproved indication [Unknown]

NARRATIVE: CASE EVENT DATE: 20131030
